FAERS Safety Report 8991255 (Version 4)
Quarter: 2014Q3

REPORT INFORMATION
  Report Type: Report from Study
  Country: CA (occurrence: CA)
  Receive Date: 20121231
  Receipt Date: 20140826
  Transmission Date: 20150326
  Serious: Yes (Hospitalization, Other)
  Sender: FDA-Public Use
  Company Number: CA-ROCHE-1168672

PATIENT
  Age: 33 Year
  Sex: Female
  Weight: 155 kg

DRUGS (26)
  1. OMALIZUMAB [Suspect]
     Active Substance: OMALIZUMAB
     Route: 058
     Dates: start: 20091229
  2. PREDNISONE. [Concomitant]
     Active Substance: PREDNISONE
     Indication: PRODUCT USED FOR UNKNOWN INDICATION
     Route: 065
  3. UNIPHYL [Concomitant]
     Active Substance: THEOPHYLLINE ANHYDROUS
  4. PANTOLOC [Concomitant]
     Active Substance: PANTOPRAZOLE SODIUM
  5. BROMOFORM [Concomitant]
  6. MYROXYLON BALSAMUM [Concomitant]
  7. OMALIZUMAB [Suspect]
     Active Substance: OMALIZUMAB
     Route: 058
     Dates: start: 20130605
  8. ALVESCO [Concomitant]
     Active Substance: CICLESONIDE
     Route: 065
  9. OMALIZUMAB [Suspect]
     Active Substance: OMALIZUMAB
     Route: 058
     Dates: start: 20091020
  10. OMALIZUMAB [Suspect]
     Active Substance: OMALIZUMAB
     Route: 058
     Dates: start: 20140109
  11. SINGULAIR [Concomitant]
     Active Substance: MONTELUKAST SODIUM
  12. ACONITUM NAPELLUS [Concomitant]
     Active Substance: ACONITUM NAPELLUS
  13. CITRIC ACID [Concomitant]
     Active Substance: CITRIC ACID MONOHYDRATE
  14. OMALIZUMAB [Suspect]
     Active Substance: OMALIZUMAB
     Route: 058
     Dates: start: 20130905
  15. OMALIZUMAB [Suspect]
     Active Substance: OMALIZUMAB
     Route: 058
     Dates: start: 20140807
  16. OMALIZUMAB [Suspect]
     Active Substance: OMALIZUMAB
     Route: 058
     Dates: start: 20140821
  17. CODEINE [Concomitant]
     Active Substance: CODEINE
  18. ETHANOL [Concomitant]
     Active Substance: ALCOHOL
  19. OMALIZUMAB [Suspect]
     Active Substance: OMALIZUMAB
     Route: 058
     Dates: start: 20130402
  20. OXEZE [Concomitant]
     Indication: PRODUCT USED FOR UNKNOWN INDICATION
     Route: 065
  21. VENTOLIN [Concomitant]
     Active Substance: ALBUTEROL SULFATE
  22. MYROXYLON BALSAMUM [Concomitant]
  23. OMALIZUMAB [Suspect]
     Active Substance: OMALIZUMAB
     Indication: ASTHMA
     Route: 058
     Dates: start: 20071127
  24. OMALIZUMAB [Suspect]
     Active Substance: OMALIZUMAB
     Route: 058
     Dates: start: 20090427
  25. OMALIZUMAB [Suspect]
     Active Substance: OMALIZUMAB
     Route: 058
     Dates: start: 20090922
  26. OMALIZUMAB [Suspect]
     Active Substance: OMALIZUMAB
     Route: 058
     Dates: start: 20120725

REACTIONS (16)
  - Nasopharyngitis [Unknown]
  - Hyperaesthesia [Unknown]
  - Blood pressure increased [Not Recovered/Not Resolved]
  - Sinusitis [Not Recovered/Not Resolved]
  - Acute tonsillitis [Unknown]
  - Rash macular [Unknown]
  - Bronchitis [Not Recovered/Not Resolved]
  - Hypersensitivity [Unknown]
  - Asthma [Unknown]
  - Heart rate increased [Unknown]
  - Weight increased [Unknown]
  - Eczema [Unknown]
  - Superinfection [Unknown]
  - Mouth ulceration [Unknown]
  - Mobility decreased [Unknown]
  - Upper limb fracture [Unknown]

NARRATIVE: CASE EVENT DATE: 20080930
